FAERS Safety Report 6497281-X (Version None)
Quarter: 2009Q4

REPORT INFORMATION
  Report Type: 
  Country: None (occurrence: None)
  Receive Date: 20091215
  Receipt Date: 20090811
  Transmission Date: 20100525
  Serious: No
  Sender: FDA-Public Use
  Company Number: A0801626A

PATIENT
  Age: 66 Year
  Sex: Male

DRUGS (2)
  1. AVODART [Suspect]
     Indication: BENIGN PROSTATIC HYPERPLASIA
     Dosage: 1CAP THREE TIMES PER WEEK
     Route: 048
     Dates: start: 20081201, end: 20090801
  2. ASPIRIN [Concomitant]

REACTIONS (1)
  - ARTHRALGIA [None]
